FAERS Safety Report 9802914 (Version 2)
Quarter: 2014Q1

REPORT INFORMATION
  Report Type: Spontaneous
  Country: IT (occurrence: None)
  Receive Date: 20140102
  Receipt Date: 20140219
  Transmission Date: 20141002
  Serious: Yes (Hospitalization)
  Sender: FDA-Public Use
  Company Number: AUR-APL-2013-10886

PATIENT
  Age: 83 Year
  Sex: Male

DRUGS (2)
  1. OLANZAPINE (OLANZAPINE) [Suspect]
     Indication: ABNORMAL BEHAVIOUR
     Dosage: 1 IN 1 D
     Route: 048
     Dates: start: 20131119, end: 20131204
  2. CLEXANE (ENOXAPARIN  SODIUM) [Concomitant]

REACTIONS (3)
  - Bone marrow failure [None]
  - Leukopenia [None]
  - Pancytopenia [None]
